FAERS Safety Report 18035105 (Version 1)
Quarter: 2020Q3

REPORT INFORMATION
  Report Type: Spontaneous
  Country: US (occurrence: US)
  Receive Date: 20200716
  Receipt Date: 20200716
  Transmission Date: 20201103
  Serious: Yes (Life-Threatening, Hospitalization)
  Sender: FDA-Public Use
  Company Number: None

PATIENT
  Age: 30 Year
  Sex: Male
  Weight: 106 kg

DRUGS (1)
  1. IBUPROFEN (IBUPROFEN 100MG TAB) [Suspect]
     Active Substance: IBUPROFEN
     Indication: PAIN
     Dates: start: 20190917, end: 20190917

REACTIONS (4)
  - Urticaria [None]
  - Cardiac arrest [None]
  - Anaphylactic reaction [None]
  - Angioedema [None]

NARRATIVE: CASE EVENT DATE: 20190917
